FAERS Safety Report 11067693 (Version 18)
Quarter: 2018Q2

REPORT INFORMATION
  Report Type: Report from Study
  Country: CA (occurrence: CA)
  Receive Date: 20150427
  Receipt Date: 20180417
  Transmission Date: 20180711
  Serious: Yes (Hospitalization, Other)
  Sender: FDA-Public Use
  Company Number: CA-ROCHE-1563563

PATIENT
  Age: 55 Year
  Sex: Female

DRUGS (15)
  1. ERIVEDGE [Suspect]
     Active Substance: VISMODEGIB
     Route: 065
     Dates: start: 201707
  2. MIDAMOR [Concomitant]
     Active Substance: AMILORIDE HYDROCHLORIDE
  3. NORTRIPTYLINE [Concomitant]
     Active Substance: NORTRIPTYLINE
  4. METOCLOPRAMIDE. [Suspect]
     Active Substance: METOCLOPRAMIDE
     Indication: NAUSEA
     Route: 065
     Dates: start: 201503
  5. TRAZODONE [Concomitant]
     Active Substance: TRAZODONE HYDROCHLORIDE
  6. AMILORIDE [Concomitant]
     Active Substance: AMILORIDE
  7. MORPHINE [Suspect]
     Active Substance: MORPHINE
     Indication: PAIN
     Route: 065
  8. OMEPRAZOLE. [Concomitant]
     Active Substance: OMEPRAZOLE
  9. HYDROCHLOROTHIAZIDE. [Concomitant]
     Active Substance: HYDROCHLOROTHIAZIDE
  10. CELEBREX [Concomitant]
     Active Substance: CELECOXIB
  11. ADVIL [Concomitant]
     Active Substance: IBUPROFEN
     Dosage: EXTRA STRENGTH
     Route: 065
  12. GABAPENTIN. [Concomitant]
     Active Substance: GABAPENTIN
  13. ERIVEDGE [Suspect]
     Active Substance: VISMODEGIB
     Indication: BASAL CELL CARCINOMA
     Route: 065
     Dates: start: 2011
  14. TYLENOL [Concomitant]
     Active Substance: ACETAMINOPHEN
     Dosage: EXTRA STRENGTH
     Route: 065
  15. TRAMADOL. [Concomitant]
     Active Substance: TRAMADOL
     Dosage: LONG ACTING
     Route: 065

REACTIONS (39)
  - Skin ulcer [Unknown]
  - Ill-defined disorder [Not Recovered/Not Resolved]
  - Discomfort [Not Recovered/Not Resolved]
  - Bone cyst [Unknown]
  - Sensory loss [Unknown]
  - Visual impairment [Unknown]
  - Entropion [Unknown]
  - Pancreatic duct obstruction [Recovered/Resolved]
  - Nausea [Unknown]
  - Pain [Unknown]
  - Fatigue [Unknown]
  - Neoplasm [Unknown]
  - Blister [Not Recovered/Not Resolved]
  - Telangiectasia [Unknown]
  - Malaise [Not Recovered/Not Resolved]
  - Malaise [Unknown]
  - Dehydration [Unknown]
  - Blood magnesium decreased [Unknown]
  - Pancreatitis acute [Unknown]
  - Rib fracture [Unknown]
  - Facial pain [Unknown]
  - Alopecia [Unknown]
  - Swelling [Unknown]
  - Joint dislocation [Unknown]
  - Cholelithiasis [Recovered/Resolved]
  - Confusional state [Unknown]
  - Vomiting [Unknown]
  - Nausea [Not Recovered/Not Resolved]
  - Drug ineffective [Unknown]
  - Anxiety [Unknown]
  - Haemorrhage [Not Recovered/Not Resolved]
  - Anxiety [Not Recovered/Not Resolved]
  - Insomnia [Unknown]
  - Pancreas infection [Unknown]
  - Muscle spasms [Unknown]
  - Back pain [Unknown]
  - Abdominal distension [Unknown]
  - Vomiting [Not Recovered/Not Resolved]
  - Stress [Unknown]

NARRATIVE: CASE EVENT DATE: 201503
